FAERS Safety Report 10610905 (Version 1)
Quarter: 2014Q4

REPORT INFORMATION
  Report Type: Spontaneous
  Country: US (occurrence: None)
  Receive Date: 20141124
  Receipt Date: 20141124
  Transmission Date: 20150529
  Serious: Yes (Hospitalization, Disabling)
  Sender: FDA-Public Use
  Company Number: 2633664

PATIENT
  Age: 17 Year
  Sex: Female

DRUGS (1)
  1. CIPROFLOXACIN. [Suspect]
     Active Substance: CIPROFLOXACIN
     Indication: COUGH

REACTIONS (12)
  - Peripheral coldness [None]
  - Pallor [None]
  - Compartment syndrome [None]
  - Skin graft [None]
  - Pain in extremity [None]
  - Musculoskeletal stiffness [None]
  - Blood creatine phosphokinase increased [None]
  - Neuralgia [None]
  - Skin burning sensation [None]
  - Transaminases increased [None]
  - Skin discolouration [None]
  - Peripheral swelling [None]
